FAERS Safety Report 6539013-2 (Version None)
Quarter: 2010Q1

REPORT INFORMATION
  Report Type: 
  Country: None (occurrence: None)
  Receive Date: 20100113
  Receipt Date: 20100113
  Transmission Date: 20100710
  Serious: Yes (Disabling)
  Sender: FDA-Public Use
  Company Number: None

PATIENT
  Sex: Male
  Weight: 79.3795 kg

DRUGS (2)
  1. LEVAQUIN [Suspect]
     Indication: BRONCHIAL DISORDER
     Dosage: 500 MG. 1/DAY ORALLY
     Route: 048
     Dates: start: 20091125, end: 20091204
  2. LEVAQUIN [Suspect]
     Indication: COUGH
     Dosage: 500 MG. 1/DAY ORALLY
     Route: 048
     Dates: start: 20091125, end: 20091204

REACTIONS (7)
  - ARTHRALGIA [None]
  - DIZZINESS [None]
  - FALL [None]
  - GAIT DISTURBANCE [None]
  - PARAESTHESIA [None]
  - TINNITUS [None]
  - VISION BLURRED [None]
